FAERS Safety Report 16465704 (Version 1)
Quarter: 2019Q2

REPORT INFORMATION
  Report Type: Spontaneous
  Country: US (occurrence: US)
  Receive Date: 20190621
  Receipt Date: 20190621
  Transmission Date: 20190711
  Serious: No
  Sender: FDA-Public Use
  Company Number: US-009507513-1906USA008709

PATIENT
  Age: 47 Year
  Sex: Male

DRUGS (1)
  1. CUBICIN [Suspect]
     Active Substance: DAPTOMYCIN
     Indication: URINARY TRACT INFECTION ENTEROCOCCAL
     Dosage: UNK

REACTIONS (1)
  - Product use in unapproved indication [Unknown]
